FAERS Safety Report 25722107 (Version 1)
Quarter: 2025Q3

REPORT INFORMATION
  Report Type: Report from Study
  Country: CA (occurrence: CA)
  Receive Date: 20250825
  Receipt Date: 20250825
  Transmission Date: 20251021
  Serious: Yes (Death, Other)
  Sender: ROCHE
  Company Number: CA-ROCHE-10000368263

PATIENT

DRUGS (5)
  1. RITUXIMAB [Suspect]
     Active Substance: RITUXIMAB
     Indication: Central nervous system lymphoma
     Route: 065
  2. METHOTREXATE [Suspect]
     Active Substance: METHOTREXATE
     Indication: Central nervous system lymphoma
     Route: 065
  3. CYTARABINE [Suspect]
     Active Substance: CYTARABINE
     Indication: Central nervous system lymphoma
     Route: 065
  4. PROCARBAZINE [Suspect]
     Active Substance: PROCARBAZINE
     Indication: Central nervous system lymphoma
     Route: 065
  5. IFOSFAMIDE [Suspect]
     Active Substance: IFOSFAMIDE
     Indication: Central nervous system lymphoma
     Route: 065

REACTIONS (8)
  - Acute kidney injury [Fatal]
  - Pulmonary toxicity [Fatal]
  - Pneumonia [Fatal]
  - Haemorrhage intracranial [Fatal]
  - Dementia [Fatal]
  - Febrile neutropenia [Unknown]
  - Bacteraemia [Unknown]
  - Clostridium difficile colitis [Unknown]
